FAERS Safety Report 7493511-6 (Version None)
Quarter: 2011Q2

REPORT INFORMATION
  Report Type: 
  Country: None (occurrence: None)
  Receive Date: 20110520
  Receipt Date: 20110506
  Transmission Date: 20111010
  Serious: Yes (Hospitalization)
  Sender: FDA-Public Use
  Company Number: US-MYLANLABS-2011S1010099

PATIENT
  Age: 64 Year
  Sex: Female

DRUGS (18)
  1. GLIPIZIDE [Concomitant]
  2. IRON POLYMALTOSE [Concomitant]
  3. MAGNESIUM OXIDE [Concomitant]
  4. TRIMETHOPRIM + SULFAMETHOXAZOLE [Concomitant]
     Indication: PROPHYLAXIS
     Dosage: 80/400 MG DAILY
  5. LOSARTAN POTASSIUM [Concomitant]
  6. HYDRALAZINE HCL [Concomitant]
  7. RANOLAZINE [Interacting]
     Indication: ANGINA PECTORIS
  8. NITROGLYCERIN [Concomitant]
     Route: 060
  9. OMEPRAZOLE [Concomitant]
  10. SIMVASTATIN [Concomitant]
  11. TACROLIMUS [Suspect]
  12. ASPIRIN [Concomitant]
  13. AMLODIPINE [Concomitant]
  14. MYCOPHENOLATE MOFETIL [Concomitant]
  15. ISOSORBIDE MONONITRATE [Concomitant]
  16. PREDNISONE [Concomitant]
  17. METOPROLOL SUCCINATE [Concomitant]
  18. SODIUM BICARBONATE [Concomitant]

REACTIONS (2)
  - IMMUNOSUPPRESSANT DRUG LEVEL INCREASED [None]
  - DRUG INTERACTION [None]
